FAERS Safety Report 24954703 (Version 1)
Quarter: 2025Q1

REPORT INFORMATION
  Report Type: Spontaneous
  Country: US (occurrence: US)
  Receive Date: 20250211
  Receipt Date: 20250211
  Transmission Date: 20250408
  Serious: Yes (Other)
  Sender: MSN LABORATORIES PRIVATE LIMITED
  Company Number: US-MSNLABS-2025MSNSPO00274

PATIENT

DRUGS (2)
  1. LURASIDONE HYDROCHLORIDE [Suspect]
     Active Substance: LURASIDONE HYDROCHLORIDE
     Indication: Product used for unknown indication
     Route: 065
  2. LURASIDONE HYDROCHLORIDE [Suspect]
     Active Substance: LURASIDONE HYDROCHLORIDE

REACTIONS (6)
  - Schizophrenia [Unknown]
  - Hallucination [Unknown]
  - Therapeutic response decreased [Unknown]
  - Product substitution issue [Unknown]
  - Product quality issue [Unknown]
  - Insomnia [Unknown]
